FAERS Safety Report 5706576-6 (Version None)
Quarter: 2008Q2

REPORT INFORMATION
  Report Type: 
  Country: None (occurrence: None)
  Receive Date: 20080414
  Receipt Date: 20080328
  Transmission Date: 20081010
  Serious: Yes (Other)
  Sender: FDA-Public Use
  Company Number: S08-CAN-01339-01

PATIENT
  Age: 59 Year
  Sex: Female
  Weight: 54.4 kg

DRUGS (7)
  1. ESCITALOPRAM [Suspect]
     Indication: DEPRESSION
     Dosage: 10 MG QD PO
     Route: 048
     Dates: start: 20070830, end: 20071018
  2. ESCITALOPRAM [Suspect]
     Indication: DEPRESSION
     Dosage: 15 MG QD PO
     Route: 048
     Dates: start: 20071019, end: 20071031
  3. ESCITALOPRAM [Suspect]
     Indication: DEPRESSION
     Dosage: 20 MG QD PO
     Route: 048
     Dates: start: 20071101, end: 20080122
  4. ESCITALOPRAM [Suspect]
     Indication: DEPRESSION
     Dosage: 15 MG QD PO
     Route: 048
     Dates: start: 20080123
  5. SEROQUEL [Concomitant]
  6. VALERIAN TEA (VALERIANA OFFICINALIS EXTRACT) [Concomitant]
  7. HOLY BASIL (HERBAL) [Concomitant]

REACTIONS (6)
  - DIZZINESS [None]
  - FATIGUE [None]
  - SUICIDAL IDEATION [None]
  - THINKING ABNORMAL [None]
  - TINNITUS [None]
  - WEIGHT DECREASED [None]
